FAERS Safety Report 17095337 (Version 1)
Quarter: 2019Q4

REPORT INFORMATION
  Report Type: Spontaneous
  Country: US (occurrence: US)
  Receive Date: 20191104
  Receipt Date: 20191104
  Transmission Date: 20200122
  Serious: No
  Sender: FDA-Public Use
  Company Number: None

PATIENT
  Age: 41 Year
  Sex: Female

DRUGS (1)
  1. AIMOVIG [Suspect]
     Active Substance: ERENUMAB-AOOE
     Indication: MIGRAINE
     Route: 058
     Dates: start: 201905, end: 201910

REACTIONS (3)
  - Erythromelalgia [None]
  - Raynaud^s phenomenon [None]
  - Condition aggravated [None]

NARRATIVE: CASE EVENT DATE: 201905
